FAERS Safety Report 18211941 (Version 8)
Quarter: 2020Q4

REPORT INFORMATION
  Report Type: Report from Study
  Country: IL (occurrence: IL)
  Receive Date: 20200831
  Receipt Date: 20201019
  Transmission Date: 20210113
  Serious: Yes (Death, Hospitalization, Other)
  Sender: FDA-Public Use
  Company Number: IL-GLAXOSMITHKLINE-IL2020GSK171158

PATIENT
  Age: 65 Year
  Sex: Female
  Weight: 80 kg

DRUGS (17)
  1. BELANTAMAB MAFODOTIN. [Suspect]
     Active Substance: BELANTAMAB MAFODOTIN
     Dosage: UNK,CYC
     Route: 042
     Dates: start: 20200910
  2. DEXACORT [Concomitant]
     Active Substance: DEXAMETHASONE SODIUM PHOSPHATE
     Dosage: 20 MG/100ML, QOD
     Route: 042
     Dates: start: 20200827, end: 20200827
  3. ZOFRAN [Concomitant]
     Active Substance: ONDANSETRON HYDROCHLORIDE
     Dosage: 4MG/100ML EVERY 6HR
     Route: 048
  4. ETOPAN [Suspect]
     Active Substance: ETODOLAC
     Indication: ARTHRALGIA
     Dosage: 400 MG, BID
     Route: 048
     Dates: start: 20200821, end: 20200822
  5. DISEPTYL [Concomitant]
     Active Substance: SULFAMETHOXAZOLE\TRIMETHOPRIM
     Dosage: EVERY 48 HR
     Route: 048
  6. XARELTO [Concomitant]
     Active Substance: RIVAROXABAN
     Dosage: 20 MG, QD
     Route: 048
  7. BELANTAMAB MAFODOTIN. [Suspect]
     Active Substance: BELANTAMAB MAFODOTIN
     Indication: PLASMA CELL MYELOMA
     Dosage: UNK, CYC
     Route: 042
     Dates: start: 20200820
  8. OMEPRADEX [Concomitant]
     Active Substance: OMEPRAZOLE
     Dosage: 20 MG EVERY 12 HR
     Route: 048
  9. OPTALGIN [Concomitant]
     Active Substance: METAMIZOLE
     Dosage: 1GR/4M, AS REQUIRED
     Route: 048
  10. PRAMIN [Concomitant]
     Dosage: 10MG/100 ML , AS REQUIRED
     Route: 042
  11. DOLESTINE [Concomitant]
     Dosage: 75 MG, AS REQUIRED
     Route: 030
  12. DEXACORT [Concomitant]
     Active Substance: DEXAMETHASONE SODIUM PHOSPHATE
     Dosage: 20 MG/100ML, QOD
     Route: 042
     Dates: start: 20200826, end: 20200826
  13. OXYCODONE HYDROCHLORIDE. [Concomitant]
     Active Substance: OXYCODONE HYDROCHLORIDE
     Dosage: 10MG/5ML , AS REQUIRED
     Route: 048
  14. ZOVIRAX [Concomitant]
     Active Substance: ACYCLOVIR
     Dosage: 400 MG EVERY 8 HR
     Route: 048
  15. URSOLIT [Concomitant]
     Dosage: 300 MG EVERY 12 HR
     Route: 048
  16. FENTANYL TRANSDERMAL SYSTEM [Concomitant]
     Active Substance: FENTANYL
     Dosage: 600 UG EVERY 72 HR
  17. URSOFALK [Concomitant]
     Active Substance: URSODIOL
     Dosage: 300 MG, BID
     Route: 048

REACTIONS (2)
  - Hepatic enzyme increased [Recovering/Resolving]
  - Sepsis [Fatal]

NARRATIVE: CASE EVENT DATE: 20200822
